FAERS Safety Report 7369534-4 (Version None)
Quarter: 2011Q1

REPORT INFORMATION
  Report Type: 
  Country: None (occurrence: None)
  Receive Date: 20110317
  Receipt Date: 20110317
  Transmission Date: 20110831
  Serious: Yes (Other)
  Sender: FDA-Public Use
  Company Number: None

PATIENT
  Age: 47 Year
  Sex: Female
  Weight: 81.6475 kg

DRUGS (1)
  1. PRILOSEC [Suspect]
     Indication: BARRETT'S OESOPHAGUS
     Dosage: 40MG - ONE ONCE DAILY BY MOUTH
     Dates: start: 20020601

REACTIONS (3)
  - SKIN REACTION [None]
  - RASH [None]
  - PRURITUS [None]
